FAERS Safety Report 5189958-3 (Version None)
Quarter: 2006Q4

REPORT INFORMATION
  Report Type: 
  Country: None (occurrence: None)
  Receive Date: 20061215
  Receipt Date: 20061204
  Transmission Date: 20070319
  Serious: Yes (Other)
  Sender: FDA-Public Use
  Company Number: 2006149823

PATIENT

DRUGS (1)
  1. LYRICA [Suspect]
     Indication: BURNING SENSATION
     Dosage: 75 MG (75 MG, 1 IN 1 D)

REACTIONS (3)
  - BLINDNESS [None]
  - DEAFNESS [None]
  - MEMORY IMPAIRMENT [None]
